FAERS Safety Report 25313952 (Version 1)
Quarter: 2025Q2

REPORT INFORMATION
  Report Type: Spontaneous
  Country: IL (occurrence: IL)
  Receive Date: 20250514
  Receipt Date: 20250514
  Transmission Date: 20250716
  Serious: Yes (Death, Other)
  Sender: TEVA
  Company Number: IL-TEVA-VS-3331528

PATIENT
  Sex: Female

DRUGS (1)
  1. AMLODIPINE [Suspect]
     Active Substance: AMLODIPINE BESYLATE
     Indication: Product used for unknown indication
     Route: 048

REACTIONS (5)
  - Choking [Unknown]
  - Product physical issue [Unknown]
  - Product size issue [Unknown]
  - Death [Fatal]
  - Foreign body in gastrointestinal tract [Unknown]
